FAERS Safety Report 9439163 (Version 1)
Quarter: 2013Q3

REPORT INFORMATION
  Report Type: Spontaneous
  Country: NL (occurrence: NL)
  Receive Date: 20130802
  Receipt Date: 20130802
  Transmission Date: 20140515
  Serious: Yes (Hospitalization, Other)
  Sender: FDA-Public Use
  Company Number: NL-ASTRAZENECA-2013SE54321

PATIENT
  Age: 31 Year
  Sex: Female

DRUGS (3)
  1. QUETIAPINE [Suspect]
     Route: 048
     Dates: start: 20130214, end: 20130708
  2. SERTRALINE [Concomitant]
     Route: 048
     Dates: start: 2013, end: 20130708
  3. LORAZEPAM [Concomitant]
     Route: 048
     Dates: start: 2013, end: 20130708

REACTIONS (5)
  - Toxicity to various agents [Unknown]
  - Hepatic function abnormal [Unknown]
  - Blood creatine phosphokinase increased [Recovering/Resolving]
  - Body temperature increased [Unknown]
  - Somnolence [Unknown]
